FAERS Safety Report 24664621 (Version 1)
Quarter: 2024Q4

REPORT INFORMATION
  Report Type: Spontaneous
  Country: US (occurrence: None)
  Receive Date: 20241125
  Receipt Date: 20241125
  Transmission Date: 20250115
  Serious: Yes (Death, Life-Threatening)
  Sender: Public
  Company Number: None

PATIENT
  Age: 83 Year
  Sex: Male

DRUGS (1)
  1. IRON DEXTRAN [Suspect]
     Active Substance: IRON DEXTRAN
     Route: 042

REACTIONS (4)
  - Cardiac arrest [None]
  - Fall [None]
  - Pupil fixed [None]
  - Infusion related reaction [None]

NARRATIVE: CASE EVENT DATE: 20241125
